FAERS Safety Report 5630647-6 (Version None)
Quarter: 2008Q1

REPORT INFORMATION
  Report Type: 
  Country: None (occurrence: None)
  Receive Date: 20080214
  Receipt Date: 20080205
  Transmission Date: 20080703
  Serious: Yes (Other)
  Sender: FDA-Public Use
  Company Number: 2008003278

PATIENT
  Age: 31 Year
  Sex: Male
  Weight: 81.1939 kg

DRUGS (1)
  1. LISTERINE WHITENING PRE-BRUSH RINSE (NO ACTIVE INGREDIENT) [Suspect]
     Indication: DENTAL CARE
     Dosage: 3 TEASPOONS TWICE DAILY, ORAL
     Route: 048
     Dates: start: 20080128, end: 20080131

REACTIONS (2)
  - CAUSTIC INJURY [None]
  - SWELLING FACE [None]
